FAERS Safety Report 6307645-2 (Version None)
Quarter: 2009Q3

REPORT INFORMATION
  Report Type: 
  Country: None (occurrence: None)
  Receive Date: 20090813
  Receipt Date: 20090804
  Transmission Date: 20100115
  Serious: Yes (Other)
  Sender: FDA-Public Use
  Company Number: PHEH2009US04551

PATIENT
  Sex: Male
  Weight: 56.236 kg

DRUGS (1)
  1. RECLAST [Suspect]
     Indication: OSTEOPOROSIS
     Dosage: 5 MG ONCE, YEARLY
     Dates: start: 20080516

REACTIONS (2)
  - EYE OPERATION [None]
  - VISION BLURRED [None]
